FAERS Safety Report 22034937 (Version 1)
Quarter: 2023Q1

REPORT INFORMATION
  Report Type: Spontaneous
  Country: US (occurrence: US)
  Receive Date: 20230224
  Receipt Date: 20230224
  Transmission Date: 20230418
  Serious: No
  Sender: FDA-Public Use
  Company Number: US-REGENERON PHARMACEUTICALS, INC.-2022-159995

PATIENT
  Sex: Male

DRUGS (1)
  1. EVKEEZA [Suspect]
     Active Substance: EVINACUMAB-DGNB
     Indication: Type IIa hyperlipidaemia
     Dosage: 345 MG, MONTHLY
     Route: 065

REACTIONS (3)
  - Incorrect dose administered [Unknown]
  - Product leakage [Unknown]
  - Off label use [Unknown]

NARRATIVE: CASE EVENT DATE: 20221212
